FAERS Safety Report 18938090 (Version 2)
Quarter: 2021Q1

REPORT INFORMATION
  Report Type: Report from Study
  Country: AU (occurrence: AU)
  Receive Date: 20210225
  Receipt Date: 20210304
  Transmission Date: 20210420
  Serious: Yes (Death)
  Sender: FDA-Public Use
  Company Number: AU-PFIZER INC-2021193139

PATIENT
  Age: 59 Year
  Sex: Male

DRUGS (1)
  1. FLUCONAZOLE. [Suspect]
     Active Substance: FLUCONAZOLE
     Indication: ASPERGILLUS INFECTION
     Dosage: 200 MG, DAILY
     Route: 065

REACTIONS (3)
  - Aspergillus infection [Fatal]
  - Respiratory failure [Fatal]
  - Pneumonia fungal [Fatal]
